FAERS Safety Report 6434161-X (Version None)
Quarter: 2009Q4

REPORT INFORMATION
  Report Type: 
  Country: None (occurrence: None)
  Receive Date: 20091110
  Receipt Date: 20080813
  Transmission Date: 20100525
  Serious: No
  Sender: FDA-Public Use
  Company Number: US-ASTRAZENECA-2009SE12139

PATIENT
  Age: 37 Year
  Sex: Male

DRUGS (1)
  1. PRILOSEC OTC [Suspect]
     Indication: DYSPEPSIA
     Route: 048
     Dates: start: 20080724, end: 20080801

REACTIONS (18)
  - ARTHROPATHY [None]
  - BONE PAIN [None]
  - CHEST DISCOMFORT [None]
  - CIRCUMORAL OEDEMA [None]
  - EYE SWELLING [None]
  - HYPERSENSITIVITY [None]
  - ILL-DEFINED DISORDER [None]
  - LACRIMATION INCREASED [None]
  - LIP SWELLING [None]
  - PAIN [None]
  - PRURITUS [None]
  - RASH [None]
  - RASH PAPULAR [None]
  - RESTLESSNESS [None]
  - SCAR [None]
  - SWELLING [None]
  - URTICARIA [None]
  - VOMITING [None]
